FAERS Safety Report 11172305 (Version 1)
Quarter: 2015Q2

REPORT INFORMATION
  Report Type: Spontaneous
  Country: BG (occurrence: BG)
  Receive Date: 20150608
  Receipt Date: 20150608
  Transmission Date: 20150821
  Serious: Yes (Life-Threatening, Hospitalization)
  Sender: FDA-Public Use
  Company Number: BG-SYMPLMED PHARMACEUTICALS-2015SYMPLMED000020

PATIENT

DRUGS (3)
  1. DIAPREL [Concomitant]
     Active Substance: GLICLAZIDE
     Indication: DIABETES MELLITUS
     Dosage: 1 DF, QD
  2. PRESTARIUM-CO [Suspect]
     Active Substance: AMLODIPINE BESYLATE\PERINDOPRIL ARGININE
     Indication: HYPERTENSION
     Dosage: 10MG/10MG, 3 DF, QD
     Route: 048
     Dates: start: 201504, end: 201505
  3. METFOGAMMA [Concomitant]
     Indication: DIABETES MELLITUS
     Dosage: UNK

REACTIONS (6)
  - Cardiac failure [Recovered/Resolved]
  - Dyspnoea [Recovered/Resolved]
  - Prescribed overdose [Recovered/Resolved]
  - Acute kidney injury [Recovered/Resolved]
  - Respiratory failure [Recovered/Resolved]
  - Hypotension [Recovered/Resolved]

NARRATIVE: CASE EVENT DATE: 201504
